FAERS Safety Report 4751296-8 (Version None)
Quarter: 2005Q3

REPORT INFORMATION
  Report Type: 
  Country: None (occurrence: None)
  Receive Date: 20050822
  Receipt Date: 20050822
  Transmission Date: 20060218
  Serious: Yes (Other)
  Sender: FDA-Public Use
  Company Number: None

PATIENT
  Age: 77 Year
  Sex: Female

DRUGS (1)
  1. TAXUS EXPRESS 2    PACLITAXEL-ELUTING CORONARY STENT [Suspect]

REACTIONS (1)
  - DEVICE MALFUNCTION [None]
